FAERS Safety Report 7898826-5 (Version None)
Quarter: 2011Q4

REPORT INFORMATION
  Report Type: 
  Country: None (occurrence: None)
  Receive Date: 20111107
  Receipt Date: 20111103
  Transmission Date: 20120403
  Serious: Yes (Death, Hospitalization)
  Sender: FDA-Public Use
  Company Number: US-B.I. PHARMACEUTICALS,INC./RIDGEFIELD-2011-BP-25537BP

PATIENT
  Age: 78 Year
  Sex: Female

DRUGS (1)
  1. PRADAXA [Suspect]
     Indication: ATRIAL FIBRILLATION
     Dosage: 300 MG
     Route: 048

REACTIONS (8)
  - RENAL FAILURE [None]
  - HAEMORRHAGE [None]
  - HYPOTENSION [None]
  - PULMONARY HAEMORRHAGE [None]
  - SUBARACHNOID HAEMORRHAGE [None]
  - INTRA-ABDOMINAL HAEMORRHAGE [None]
  - CONTUSION [None]
  - RECTAL HAEMORRHAGE [None]
